FAERS Safety Report 23602270 (Version 1)
Quarter: 2024Q1

REPORT INFORMATION
  Report Type: Spontaneous
  Country: NP (occurrence: NP)
  Receive Date: 20240306
  Receipt Date: 20240306
  Transmission Date: 20240409
  Serious: Yes (Other)
  Sender: FDA-Public Use
  Company Number: NP-TAKEDA-2020TUS058227

PATIENT
  Sex: Female

DRUGS (2)
  1. ICLUSIG [Suspect]
     Active Substance: PONATINIB
     Indication: Chronic myeloid leukaemia
     Dosage: 30 MILLIGRAM
     Route: 065
  2. ICLUSIG [Suspect]
     Active Substance: PONATINIB
     Dosage: 45 MILLIGRAM
     Route: 065

REACTIONS (2)
  - Chronic myeloid leukaemia [Unknown]
  - Thyroid disorder [Unknown]
